FAERS Safety Report 9737148 (Version 2)
Quarter: 2013Q4

REPORT INFORMATION
  Report Type: Not Available
  Country: FR (occurrence: FR)
  Receive Date: 20131206
  Receipt Date: 20131223
  Transmission Date: 20140711
  Serious: Yes (Hospitalization)
  Sender: FDA-Public Use
  Company Number: FR-NAPPMUNDI-GBR-2013-0016469

PATIENT
  Age: 78 Year
  Sex: Male

DRUGS (17)
  1. OXYCONTIN LP 5 MG, COMPRIME PELLICULE A LIBERATION PROLONGEE [Suspect]
     Indication: PAIN
     Dosage: 5 MG, BID
     Route: 048
     Dates: start: 20131001, end: 20131016
  2. OXYNORMORO COMPRIME ORODISPERSIBLE 5 MG [Suspect]
     Indication: PAIN
     Dosage: 5 MG, DAILY
     Route: 048
     Dates: start: 20131001, end: 20131016
  3. RAMIPRIL [Concomitant]
     Dosage: 10 MG, 1 DF AM
  4. BISOPROLOL [Concomitant]
     Dosage: 2.5 MG,1 DF AM
  5. SPIRONOLACTONE [Concomitant]
     Dosage: 25 MG, 1 DF AM
  6. FUROSEMIDE [Concomitant]
     Dosage: 40 MG, 1 DF AM
  7. AMIODARONE [Concomitant]
     Dosage: 200 1 DF, AM
  8. ALLOPURINOL [Concomitant]
     Dosage: 100 MG, 1 DF AM
  9. TAHOR [Concomitant]
     Dosage: 20 MG, 1 DF AM
  10. PREVISCAN                          /00261401/ [Concomitant]
     Dosage: 20 MG, 1 DF PM
  11. REPAGLINIDE [Concomitant]
     Dosage: 0.5 MG, 1 DF BID
  12. ZOPLICONE [Concomitant]
     Dosage: 10 MG, PRN
  13. DAFLON                             /00426001/ [Concomitant]
     Dosage: 500 MG, 1 DF BID
  14. MELAXOSE [Concomitant]
     Dosage: UNK, PRN
  15. DAFALGAN [Concomitant]
     Dosage: 1 G, Q6H
     Dates: start: 20130930
  16. PURILON [Concomitant]
     Dosage: UNK
     Dates: start: 20131001
  17. DERMOVAL                           /00337102/ [Concomitant]
     Dosage: UNK
     Dates: start: 20131021

REACTIONS (2)
  - Blood cortisol decreased [Recovering/Resolving]
  - Renal failure chronic [Unknown]
